FAERS Safety Report 6726471-3 (Version None)
Quarter: 2010Q2

REPORT INFORMATION
  Report Type: 
  Country: None (occurrence: None)
  Receive Date: 20100514
  Receipt Date: 20100504
  Transmission Date: 20101027
  Serious: Yes (Congenital Anomaly)
  Sender: FDA-Public Use
  Company Number: US-WYE-H15046010

PATIENT
  Sex: Male

DRUGS (6)
  1. DESVENLAFAXINE SUCCINATE MONOHYDRATE [Suspect]
     Indication: MAJOR DEPRESSION
     Route: 064
     Dates: start: 20090521, end: 20090713
  2. CALCIUM [Concomitant]
     Dosage: 800 (1250); UNSPECIFIED FREQUENCY
     Route: 064
  3. METHYLDOPA [Concomitant]
     Dosage: 500 MG AT BREAKFAST;250 MG AT LUNCH; 250 MG AT DINNER
     Route: 064
  4. PERCOCET [Concomitant]
     Dosage: 5 MG/325 MG TABLET EVERY 6 HOURS AS NEEDED
     Route: 064
  5. IBUPROFEN [Concomitant]
  6. AMLODIPINE BESYLATE [Concomitant]
     Route: 064

REACTIONS (1)
  - CLEFT LIP AND PALATE [None]
